FAERS Safety Report 6977334-X (Version None)
Quarter: 2010Q3

REPORT INFORMATION
  Report Type: 
  Country: None (occurrence: None)
  Receive Date: 20100910
  Receipt Date: 20100906
  Transmission Date: 20110219
  Serious: Yes (Death, Hospitalization, Other)
  Sender: FDA-Public Use
  Company Number: PHHY2010US58719

PATIENT
  Age: 8 Year
  Sex: Female

DRUGS (4)
  1. CYCLOSPORINE [Suspect]
     Indication: GRAFT VERSUS HOST DISEASE
  2. METHOTREXATE [Concomitant]
     Indication: GRAFT VERSUS HOST DISEASE
  3. ANTIVIRALS NOS [Concomitant]
  4. ANTIFUNGAL DRUGS [Concomitant]

REACTIONS (6)
  - KLEBSIELLA BACTERAEMIA [None]
  - LYMPHOCYTE COUNT INCREASED [None]
  - PULMONARY OEDEMA [None]
  - PYREXIA [None]
  - SEPTIC SHOCK [None]
  - TACHYPNOEA [None]
